FAERS Safety Report 13025793 (Version 3)
Quarter: 2018Q1

REPORT INFORMATION
  Report Type: Spontaneous
  Country: DE (occurrence: DE)
  Receive Date: 20161214
  Receipt Date: 20180301
  Transmission Date: 20180508
  Serious: Yes (Congenital Anomaly, Other)
  Sender: FDA-Public Use
  Company Number: DE-SUN PHARMACEUTICAL INDUSTRIES LTD-2016RR-129259

PATIENT
  Sex: Female
  Weight: 85 kg

DRUGS (4)
  1. CITALOPRAM [Suspect]
     Active Substance: CITALOPRAM HYDROBROMIDE
     Indication: ANXIETY DISORDER
     Dosage: 20 MG
     Route: 048
     Dates: start: 20110801, end: 20151001
  2. FOLIO FORTE [Concomitant]
     Active Substance: FOLIC ACID\VITAMINS
     Indication: PRODUCT USED FOR UNKNOWN INDICATION
     Dosage: UNK
     Route: 065
  3. MARCUMAR [Concomitant]
     Active Substance: PHENPROCOUMON
     Indication: HYPERCOAGULATION
     Dosage: 3 MG, DAILY
     Route: 065
     Dates: start: 20040701
  4. L-THYROXIN [Concomitant]
     Active Substance: LEVOTHYROXINE SODIUM
     Indication: HYPOTHYROIDISM
     Dosage: UNK
     Route: 065

REACTIONS (4)
  - Paternal exposure during pregnancy [Unknown]
  - Foetal chromosome abnormality [Recovered/Resolved]
  - Abortion spontaneous [Recovered/Resolved]
  - Paternal exposure timing unspecified [Unknown]
